FAERS Safety Report 14192774 (Version 2)
Quarter: 2018Q1

REPORT INFORMATION
  Report Type: Spontaneous
  Country: US (occurrence: US)
  Receive Date: 20171115
  Receipt Date: 20180110
  Transmission Date: 20180508
  Serious: Yes (Other)
  Sender: FDA-Public Use
  Company Number: US-BAUSCH-BL-2017-031412

PATIENT
  Age: 65 Year
  Sex: Male
  Weight: 102.15 kg

DRUGS (4)
  1. COMBIGAN [Concomitant]
     Active Substance: BRIMONIDINE TARTRATE\TIMOLOL MALEATE
     Indication: PRODUCT USED FOR UNKNOWN INDICATION
     Route: 047
  2. LOTEMAX [Suspect]
     Active Substance: LOTEPREDNOL ETABONATE
     Indication: EYE DISORDER
     Route: 047
     Dates: start: 201611, end: 201611
  3. PROLENSA [Concomitant]
     Active Substance: BROMFENAC SODIUM
     Indication: PRODUCT USED FOR UNKNOWN INDICATION
     Route: 047
  4. LOTEMAX [Suspect]
     Active Substance: LOTEPREDNOL ETABONATE
     Dosage: CURRENT DOSE
     Route: 047

REACTIONS (3)
  - Treatment noncompliance [Unknown]
  - Condition aggravated [Recovered/Resolved]
  - Eye disorder [Recovered/Resolved]

NARRATIVE: CASE EVENT DATE: 201611
